FAERS Safety Report 6661466-X (Version None)
Quarter: 2010Q1

REPORT INFORMATION
  Report Type: 
  Country: None (occurrence: None)
  Receive Date: 20100331
  Receipt Date: 20100324
  Transmission Date: 20100710
  Serious: Yes (Hospitalization)
  Sender: FDA-Public Use
  Company Number: US-MERCK-1003USA04061

PATIENT
  Age: 72 Year
  Sex: Male

DRUGS (3)
  1. ZOLINZA [Suspect]
     Indication: MYCOSIS FUNGOIDES
     Route: 048
     Dates: start: 20080101, end: 20100101
  2. ZOLINZA [Suspect]
     Route: 048
  3. ZOLINZA [Suspect]
     Route: 048

REACTIONS (9)
  - ASTHENIA [None]
  - DIARRHOEA [None]
  - GASTRIC ULCER [None]
  - LUNG INFECTION [None]
  - PNEUMONIA [None]
  - SKIN LACERATION [None]
  - SMALL INTESTINAL OBSTRUCTION [None]
  - STAPHYLOCOCCAL SEPSIS [None]
  - SYNCOPE [None]
